FAERS Safety Report 21335155 (Version 1)
Quarter: 2022Q3

REPORT INFORMATION
  Report Type: Spontaneous
  Country: US (occurrence: US)
  Receive Date: 20220915
  Receipt Date: 20220915
  Transmission Date: 20221026
  Serious: Yes (Death, Other)
  Sender: FDA-Public Use
  Company Number: US-BRISTOL-MYERS SQUIBB COMPANY-2022-105982

PATIENT
  Age: 76 Year
  Sex: Female

DRUGS (2)
  1. REVLIMID [Suspect]
     Active Substance: LENALIDOMIDE
     Indication: Plasma cell myeloma
     Route: 048
     Dates: start: 20200919, end: 20220731
  2. REVLIMID [Suspect]
     Active Substance: LENALIDOMIDE
     Indication: Hepatitis

REACTIONS (2)
  - Colon cancer [Fatal]
  - Off label use [Unknown]

NARRATIVE: CASE EVENT DATE: 20220816
